FAERS Safety Report 8309787-9 (Version None)
Quarter: 2012Q2

REPORT INFORMATION
  Report Type: 
  Country: None (occurrence: None)
  Receive Date: 20120425
  Receipt Date: 20120418
  Transmission Date: 20120825
  Serious: Yes (Other)
  Sender: FDA-Public Use
  Company Number: PHHY2012JP033815

PATIENT
  Age: 92 Year
  Sex: Male

DRUGS (1)
  1. EXELON [Suspect]
     Indication: DEMENTIA ALZHEIMER'S TYPE
     Dosage: 18 MG, DAILY
     Route: 062

REACTIONS (2)
  - MIOSIS [None]
  - DEPRESSED LEVEL OF CONSCIOUSNESS [None]
